FAERS Safety Report 8426319-5 (Version None)
Quarter: 2012Q2

REPORT INFORMATION
  Report Type: 
  Country: None (occurrence: None)
  Receive Date: 20120611
  Receipt Date: 20120608
  Transmission Date: 20120825
  Serious: Yes (Other)
  Sender: FDA-Public Use
  Company Number: US-PFIZER INC-2012138648

PATIENT
  Sex: Female
  Weight: 68.027 kg

DRUGS (5)
  1. LIPITOR [Suspect]
     Dosage: UNK, 1X/DAY
     Route: 048
  2. VITAMIN D [Concomitant]
     Dosage: UNK
  3. LIPITOR [Suspect]
     Dosage: UNK
     Route: 048
  4. MULTI-VITAMINS [Concomitant]
     Dosage: UNK
  5. CALTRATE 600+D [Concomitant]
     Dosage: UNK

REACTIONS (1)
  - DEMENTIA ALZHEIMER'S TYPE [None]
